FAERS Safety Report 5820133-2 (Version None)
Quarter: 2008Q3

REPORT INFORMATION
  Report Type: 
  Country: None (occurrence: None)
  Receive Date: 20080724
  Receipt Date: 20080710
  Transmission Date: 20090109
  Serious: Yes (Other)
  Sender: FDA-Public Use
  Company Number: PHBS2008NZ05030

PATIENT
  Sex: Female

DRUGS (5)
  1. VOLTAREN [Suspect]
     Indication: PAIN
     Dosage: 5 TABLETS OVER 14 HOURS
     Route: 048
     Dates: start: 20080709, end: 20080710
  2. PREDNISONE TAB [Concomitant]
     Dosage: 2.5 MG, UNK
  3. QUININE [Concomitant]
  4. OMEPRAZOLE [Concomitant]
  5. HORMONES [Concomitant]

REACTIONS (2)
  - EAR HAEMORRHAGE [None]
  - EPISTAXIS [None]
